FAERS Safety Report 10040283 (Version 3)
Quarter: 2020Q2

REPORT INFORMATION
  Report Type: Spontaneous
  Country: BR (occurrence: BR)
  Receive Date: 20140327
  Receipt Date: 20200408
  Transmission Date: 20200713
  Serious: No
  Sender: FDA-Public Use
  Company Number: BR-AMGEN-BRASP2014021347

PATIENT
  Age: 32 Year
  Sex: Female
  Weight: 63 kg

DRUGS (4)
  1. ENBREL [Suspect]
     Active Substance: ETANERCEPT
     Indication: RHEUMATOID ARTHRITIS
     Dosage: 50 MILLIGRAM, WEEKLY
     Route: 058
     Dates: start: 201402, end: 201911
  2. ENBREL [Suspect]
     Active Substance: ETANERCEPT
     Dosage: 1 ML PER WEEK
     Route: 065
     Dates: start: 2015
  3. ARAVA [Concomitant]
     Active Substance: LEFLUNOMIDE
     Indication: RHEUMATOID ARTHRITIS
     Dosage: 20 MG, DAILY (ONE TABLET (20 MG)
  4. ARAVA [Concomitant]
     Active Substance: LEFLUNOMIDE
     Dosage: 20 MILLIGRAM, ONCA A DAY (ONE TABLET)
     Dates: start: 2015, end: 201910

REACTIONS (4)
  - Alopecia [Not Recovered/Not Resolved]
  - Polymorphic light eruption [Unknown]
  - Premature menopause [Not Recovered/Not Resolved]
  - Amenorrhoea [Not Recovered/Not Resolved]

NARRATIVE: CASE EVENT DATE: 201403
